FAERS Safety Report 5519436-0 (Version None)
Quarter: 2007Q4

REPORT INFORMATION
  Report Type: 
  Country: None (occurrence: None)
  Receive Date: 20071116
  Receipt Date: 20070925
  Transmission Date: 20080405
  Serious: Yes (Other)
  Sender: FDA-Public Use
  Company Number: ZA-ROCHE-530512

PATIENT
  Age: 24 Month
  Sex: Female

DRUGS (5)
  1. TAMIFLU [Suspect]
     Indication: DRUG USE FOR UNKNOWN INDICATION
     Route: 065
  2. KLACID [Concomitant]
  3. PONSTAN [Concomitant]
  4. BISOLVON [Concomitant]
  5. PRELONE [Concomitant]

REACTIONS (1)
  - ANXIETY [None]
